FAERS Safety Report 5628419-1 (Version None)
Quarter: 2008Q1

REPORT INFORMATION
  Report Type: 
  Country: None (occurrence: None)
  Receive Date: 20080215
  Receipt Date: 20080207
  Transmission Date: 20080703
  Serious: Yes (Other)
  Sender: FDA-Public Use
  Company Number: US-PFIZER INC-2007104710

PATIENT
  Sex: Female

DRUGS (2)
  1. GEODON [Suspect]
     Indication: BORDERLINE PERSONALITY DISORDER
  2. GEODON [Suspect]
     Indication: AFFECTIVE DISORDER

REACTIONS (2)
  - FACIAL PALSY [None]
  - HISTRIONIC PERSONALITY DISORDER [None]
